FAERS Safety Report 9480957 (Version 1)
Quarter: 2013Q3

REPORT INFORMATION
  Report Type: Spontaneous
  Country: US (occurrence: US)
  Receive Date: 20130828
  Receipt Date: 20130828
  Transmission Date: 20140515
  Serious: Yes (Hospitalization)
  Sender: FDA-Public Use
  Company Number: US-AMGEN-KDL141588

PATIENT
  Age: 60 Year
  Sex: Female

DRUGS (1)
  1. ENBREL [Suspect]
     Indication: PSORIATIC ARTHROPATHY
     Dosage: 25 MG, 2 TIMES/WK
     Route: 058
     Dates: start: 20041015

REACTIONS (5)
  - Granulomatosis with polyangiitis [Recovered/Resolved]
  - Dialysis [Unknown]
  - Cardiac fibrillation [Unknown]
  - Angina pectoris [Unknown]
  - Myocardial infarction [Unknown]
